FAERS Safety Report 25228095 (Version 4)
Quarter: 2025Q3

REPORT INFORMATION
  Report Type: Report from Study
  Country: US (occurrence: US)
  Receive Date: 20250423
  Receipt Date: 20250828
  Transmission Date: 20251021
  Serious: Yes (Other)
  Sender: SUNOVION
  Company Number: US-SUMITOMO PHARMA SWITZERLAND GMBH-2025SPA004567

PATIENT
  Age: 70 Year
  Sex: Male

DRUGS (2)
  1. ORGOVYX [Suspect]
     Active Substance: RELUGOLIX
     Indication: Prostate cancer
     Dosage: 360 MG, SINGLE
     Route: 048
     Dates: start: 20250409, end: 20250409
  2. ORGOVYX [Suspect]
     Active Substance: RELUGOLIX
     Dosage: 120 MG, QD
     Route: 048
     Dates: start: 20250410

REACTIONS (8)
  - Retinal detachment [Unknown]
  - White blood cell count decreased [Unknown]
  - Nocturia [Recovering/Resolving]
  - Sleep disorder [Recovering/Resolving]
  - Dizziness [Unknown]
  - Hot flush [Unknown]
  - Fatigue [Recovering/Resolving]
  - Asthenia [Not Recovered/Not Resolved]
